FAERS Safety Report 4555364-5 (Version None)
Quarter: 2005Q1

REPORT INFORMATION
  Report Type: 
  Country: None (occurrence: None)
  Receive Date: 20050118
  Receipt Date: 20050118
  Transmission Date: 20050727
  Serious: Yes (Other)
  Sender: FDA-Public Use
  Company Number: None

PATIENT
  Sex: Female
  Weight: 50.3493 kg

DRUGS (2)
  1. BUPROPION  75 MG [Suspect]
     Indication: DEPRESSION
     Dosage: 2 TABS PO BID
     Route: 048
     Dates: start: 20040901
  2. BUPROPION  75 MG [Suspect]
     Indication: SMOKER
     Dosage: 2 TABS PO BID
     Route: 048
     Dates: start: 20040901

REACTIONS (2)
  - HYPERTENSION [None]
  - PHARMACEUTICAL PRODUCT COMPLAINT [None]
